FAERS Safety Report 7403558-3 (Version None)
Quarter: 2011Q2

REPORT INFORMATION
  Report Type: 
  Country: None (occurrence: None)
  Receive Date: 20110408
  Receipt Date: 20110404
  Transmission Date: 20111010
  Serious: Yes (Life-Threatening, Other)
  Sender: FDA-Public Use
  Company Number: US-PERRIGO-11US000459

PATIENT
  Sex: Male
  Weight: 12.698 kg

DRUGS (1)
  1. CHILDREN'S IBUPROFEN [Suspect]
     Indication: PYREXIA
     Dosage: 1.875 ML (75MG), ONCE
     Route: 048
     Dates: start: 20110107, end: 20110107

REACTIONS (6)
  - EYE OEDEMA [None]
  - DYSPNOEA [None]
  - COUGH [None]
  - LOCAL SWELLING [None]
  - ANAPHYLACTIC SHOCK [None]
  - HYPERSENSITIVITY [None]
